FAERS Safety Report 6701587-6 (Version None)
Quarter: 2010Q2

REPORT INFORMATION
  Report Type: 
  Country: None (occurrence: None)
  Receive Date: 20100429
  Receipt Date: 20100416
  Transmission Date: 20101027
  Serious: Yes (Other)
  Sender: FDA-Public Use
  Company Number: TR-ELI_LILLY_AND_COMPANY-TR201003004659

PATIENT
  Age: 37 Year
  Sex: Female

DRUGS (8)
  1. HUMALOG [Suspect]
     Indication: GESTATIONAL DIABETES
     Dosage: 4 IU, EACH MORNING
     Route: 058
     Dates: start: 20100301
  2. HUMALOG [Suspect]
     Dosage: 4 IU, EACH NOON
     Route: 058
     Dates: start: 20100301
  3. HUMALOG [Suspect]
     Dosage: 4 IU, EACH EVENING
     Route: 058
     Dates: start: 20100301
  4. HUMULIN N [Suspect]
     Indication: GESTATIONAL DIABETES
     Dosage: 4 IU, NIGHT
     Route: 058
     Dates: start: 20100301
  5. VITAMINS [Concomitant]
     Indication: VITAMIN SUPPLEMENTATION
     Dosage: UNK, DAILY (1/D)
     Route: 048
     Dates: start: 20090701
  6. IRON [Concomitant]
     Indication: ANAEMIA
     Dosage: UNK, DAILY (1/D)
     Route: 048
     Dates: start: 20090701
  7. IRON [Concomitant]
     Dosage: UNK, 2/D
     Route: 048
  8. MAGNESIUM [Concomitant]
     Dosage: UNK, DAILY (1/D)
     Route: 048
     Dates: start: 20090701

REACTIONS (4)
  - ABORTION THREATENED [None]
  - DRUG EXPOSURE DURING PREGNANCY [None]
  - PREMATURE LABOUR [None]
  - PRURITUS [None]
